FAERS Safety Report 8238087 (Version 22)
Quarter: 2013Q3

REPORT INFORMATION
  Report Type: Report from Study
  Country: CA (occurrence: CA)
  Receive Date: 20111109
  Receipt Date: 20130808
  Transmission Date: 20140515
  Serious: Yes (Death, Hospitalization, Other)
  Sender: FDA-Public Use
  Company Number: PHHY2011CA60376

PATIENT
  Age: 69 Year
  Sex: Male

DRUGS (8)
  1. SANDOSTATIN [Suspect]
     Indication: CARCINOID TUMOUR
     Dosage: 50 UG, TID
     Route: 058
     Dates: start: 20110623
  2. SANDOSTATIN [Suspect]
     Dosage: 50 UG, TID
     Route: 058
     Dates: end: 20110705
  3. SANDOSTATIN LAR [Suspect]
     Indication: CARCINOID TUMOUR
     Dosage: 40 MG, EVERY 4 WEEKS
     Route: 030
     Dates: start: 20110715, end: 20130718
  4. SANDOSTATIN LAR [Suspect]
     Dosage: 30 MG, EVERY 4 WEEKS
     Route: 030
  5. SANDOSTATIN LAR [Suspect]
     Dosage: 40 MG, ONCE A MONTH
     Route: 030
  6. BISOPROLOL [Concomitant]
     Dosage: 1.25 MG (1/4 DF), UNK
  7. DICYCLOMINE [Concomitant]
     Dosage: UNK UKN, UNK
  8. METOPROLOL [Concomitant]
     Dosage: UNK UKN, UNK

REACTIONS (23)
  - Death [Fatal]
  - Bronchitis [Unknown]
  - Crepitations [Unknown]
  - Wheezing [Unknown]
  - Suffocation feeling [Unknown]
  - Cough [Unknown]
  - Influenza [Unknown]
  - Abdominal pain [Unknown]
  - Dyspnoea [Unknown]
  - Gastrooesophageal reflux disease [Unknown]
  - Clostridium difficile infection [Unknown]
  - Diarrhoea [Unknown]
  - Bradycardia [Unknown]
  - Blood pressure systolic increased [Unknown]
  - Blood pressure diastolic decreased [Unknown]
  - Malignant neoplasm progression [Unknown]
  - Cachexia [Unknown]
  - Rhinorrhoea [Unknown]
  - Asthenia [Unknown]
  - Injection site pain [Unknown]
  - Gastric disorder [Unknown]
  - Nausea [Recovered/Resolved]
  - Vomiting [Recovered/Resolved]
